FAERS Safety Report 8213377-6 (Version None)
Quarter: 2012Q1

REPORT INFORMATION
  Report Type: 
  Country: None (occurrence: None)
  Receive Date: 20120315
  Receipt Date: 20120308
  Transmission Date: 20120608
  Serious: Yes (Hospitalization, Other)
  Sender: FDA-Public Use
  Company Number: US-ROCHE-1015924

PATIENT
  Sex: Female
  Weight: 89.438 kg

DRUGS (5)
  1. ACCUTANE [Suspect]
     Indication: ACNE
     Dates: start: 20000920, end: 20010513
  2. CARBAMAZEPINE [Concomitant]
     Indication: PRODUCT USED FOR UNKNOWN INDICATION
  3. RITALIN [Concomitant]
     Indication: PRODUCT USED FOR UNKNOWN INDICATION
  4. DEPAKOTE [Concomitant]
     Indication: PRODUCT USED FOR UNKNOWN INDICATION
  5. LITHIUM NOS [Concomitant]
     Indication: PRODUCT USED FOR UNKNOWN INDICATION

REACTIONS (6)
  - COLONIC POLYP [None]
  - COLON CANCER [None]
  - DEPRESSION [None]
  - HAEMORRHOIDS [None]
  - INJURY [None]
  - SUICIDAL IDEATION [None]
